FAERS Safety Report 7584412-3 (Version None)
Quarter: 2011Q2

REPORT INFORMATION
  Report Type: 
  Country: None (occurrence: None)
  Receive Date: 20110630
  Receipt Date: 20110525
  Transmission Date: 20111010
  Serious: Yes (Other)
  Sender: FDA-Public Use
  Company Number: US-BAYER-201029096NA

PATIENT
  Age: 25 Year
  Sex: Female
  Weight: 62.585 kg

DRUGS (7)
  1. IBUPROFEN [Concomitant]
  2. DOXYCYCLINE [Concomitant]
  3. LORATADINE [Concomitant]
  4. YASMIN [Suspect]
     Indication: CONTRACEPTION
     Dosage: UNK UNK, UNK
     Route: 048
     Dates: start: 20061101, end: 20070801
  5. PRILOSEC [Concomitant]
     Dosage: UNK
     Dates: start: 20070404
  6. MINOCYCLINE HCL [Concomitant]
     Route: 048
  7. YASMIN [Suspect]
     Indication: ACNE

REACTIONS (3)
  - BILIARY DYSKINESIA [None]
  - CHOLECYSTITIS CHRONIC [None]
  - GALLBLADDER DISORDER [None]
